FAERS Safety Report 7702159-7 (Version None)
Quarter: 2011Q3

REPORT INFORMATION
  Report Type: 
  Country: None (occurrence: None)
  Receive Date: 20110822
  Receipt Date: 20110817
  Transmission Date: 20111222
  Serious: Yes (Other)
  Sender: FDA-Public Use
  Company Number: NO-CEPHALON-2011004374

PATIENT
  Sex: Female

DRUGS (2)
  1. BENDAMUSTINE HCL [Suspect]
     Indication: NON-HODGKIN'S LYMPHOMA
     Route: 042
  2. RITUXIMAB [Suspect]

REACTIONS (2)
  - BLOOD BILIRUBIN INCREASED [None]
  - CYTOMEGALOVIRUS INFECTION [None]
